FAERS Safety Report 4748796-3 (Version None)
Quarter: 2005Q3

REPORT INFORMATION
  Report Type: 
  Country: None (occurrence: None)
  Receive Date: 20050812
  Receipt Date: 20050630
  Transmission Date: 20060218
  Serious: Yes (Other)
  Sender: FDA-Public Use
  Company Number: 409714

PATIENT
  Age: 60 Year
  Sex: Male
  Weight: 79.8 kg

DRUGS (4)
  1. PEGASYS [Suspect]
     Indication: HEPATITIS C
     Dosage: 180 MCG 1 PER WEEK SUBCUTANEOUS
     Route: 058
     Dates: start: 20050411, end: 20050627
  2. COPEGUS [Suspect]
     Indication: HEPATITIS C
     Dosage: 180 MCG 1 PER WEEK SUBCUTANEOUS
     Route: 058
     Dates: start: 20050411, end: 20050627
  3. COPEGUS [Suspect]
     Dosage: ORAL
     Route: 048
  4. REBETOL [Concomitant]

REACTIONS (1)
  - SUICIDAL IDEATION [None]
